FAERS Safety Report 8128485-8 (Version None)
Quarter: 2012Q1

REPORT INFORMATION
  Report Type: 
  Country: None (occurrence: None)
  Receive Date: 20120210
  Receipt Date: 20120126
  Transmission Date: 20120608
  Serious: Yes (Hospitalization, Other)
  Sender: FDA-Public Use
  Company Number: FR-ROCHE-1036999

PATIENT
  Sex: Male

DRUGS (4)
  1. RANIBIZUMAB [Suspect]
     Route: 050
     Dates: start: 20090427
  2. RANIBIZUMAB [Suspect]
     Indication: AGE-RELATED MACULAR DEGENERATION
     Route: 050
     Dates: start: 20090129
  3. RANIBIZUMAB [Suspect]
     Route: 050
     Dates: start: 20090305
  4. RANIBIZUMAB [Suspect]
     Route: 050
     Dates: start: 20090205

REACTIONS (2)
  - OSTEOARTHRITIS [None]
  - INCORRECT DRUG ADMINISTRATION DURATION [None]
